FAERS Safety Report 4356025-8 (Version None)
Quarter: 2004Q2

REPORT INFORMATION
  Report Type: 
  Country: None (occurrence: None)
  Receive Date: 20040511
  Receipt Date: 20040412
  Transmission Date: 20050107
  Serious: Yes (Hospitalization)
  Sender: FDA-Public Use
  Company Number: FR-ROCHE-364208

PATIENT
  Age: 30 Year
  Sex: Female

DRUGS (2)
  1. LOXEN [Suspect]
     Indication: PREMATURE LABOUR
     Route: 042
     Dates: start: 20021127, end: 20021130
  2. CELESTENE [Concomitant]
     Indication: ACUTE PULMONARY OEDEMA
     Route: 030
     Dates: start: 20021127, end: 20021129

REACTIONS (8)
  - ACUTE PULMONARY OEDEMA [None]
  - CARDIAC FAILURE [None]
  - COMPLICATIONS OF MATERNAL EXPOSURE TO THERAPEUTIC DRUGS [None]
  - MITRAL VALVE INCOMPETENCE [None]
  - PHLEBITIS [None]
  - PREMATURE BABY [None]
  - PULMONARY EMBOLISM [None]
  - TACHYCARDIA [None]
